FAERS Safety Report 25368392 (Version 1)
Quarter: 2025Q2

REPORT INFORMATION
  Report Type: Spontaneous
  Country: US (occurrence: None)
  Receive Date: 20250528
  Receipt Date: 20250528
  Transmission Date: 20250716
  Serious: Yes (Hospitalization)
  Sender: FDA-CTU
  Company Number: None

PATIENT
  Sex: Male

DRUGS (7)
  1. IMATINIB MESYLATE [Suspect]
     Active Substance: IMATINIB MESYLATE
     Indication: Chronic leukaemia
     Dosage: FREQUENCY : DAILY;?
     Route: 048
     Dates: start: 20220302
  2. FINASTERIDE [Concomitant]
     Active Substance: FINASTERIDE
  3. IMATINIB MESYLATE [Concomitant]
     Active Substance: IMATINIB MESYLATE
  4. METOPROL TAR TAB 25MG [Concomitant]
  5. PRAVASTATIN [Concomitant]
     Active Substance: PRAVASTATIN
  6. PRAVASTATIN [Concomitant]
     Active Substance: PRAVASTATIN
  7. SYNTHROID TAB 50MCG [Concomitant]

REACTIONS (2)
  - Blood bilirubin increased [None]
  - Therapy interrupted [None]
